FAERS Safety Report 15525668 (Version 1)
Quarter: 2018Q4

REPORT INFORMATION
  Report Type: Spontaneous
  Country: US (occurrence: US)
  Receive Date: 20181018
  Receipt Date: 20181018
  Transmission Date: 20190205
  Serious: No
  Sender: FDA-Public Use
  Company Number: US-TEVA-2018-US-892549

PATIENT
  Age: 13 Year
  Sex: Female

DRUGS (3)
  1. CAPECITABINE. [Suspect]
     Active Substance: CAPECITABINE
     Indication: HEPATOCELLULAR CARCINOMA
     Dosage: 1300 MG/M2/DAY TWICE A DAY ON DAYS 1-7 AND 14-21 FOR 24 CYCLES; THE DOSE WAS FURTHER DECREASED TO...
     Route: 048
  2. CAPECITABINE. [Suspect]
     Active Substance: CAPECITABINE
     Indication: HEPATOCELLULAR CARCINOMA
     Dosage: DOSE WAS DECREASED TO DAYS 1-7
     Route: 048
  3. SORAFENIB [Suspect]
     Active Substance: SORAFENIB
     Indication: HEPATOCELLULAR CARCINOMA
     Dosage: 400 MG/M2/DAY TWICE A DAY ON DAYS 1-28 FOR 24 CYCLES.
     Route: 048

REACTIONS (2)
  - Dry skin [Recovered/Resolved]
  - Palmar-plantar erythrodysaesthesia syndrome [Recovered/Resolved]
